FAERS Safety Report 5943367-5 (Version None)
Quarter: 2008Q4

REPORT INFORMATION
  Report Type: 
  Country: None (occurrence: None)
  Receive Date: 20081106
  Receipt Date: 20081029
  Transmission Date: 20090506
  Serious: Yes (Death, Hospitalization)
  Sender: FDA-Public Use
  Company Number: GR-ROCHE-588993

PATIENT
  Sex: Female
  Weight: 84 kg

DRUGS (5)
  1. BONIVA [Suspect]
     Indication: BREAST CANCER METASTATIC
     Dosage: DATE OF LAST DOSE PRIOR TO SAE WAS REPORTED AS 30 SEPTEMBER 2008.
     Route: 042
     Dates: start: 20080611, end: 20080930
  2. BEVACIZUMAB [Concomitant]
     Dates: start: 20071213, end: 20080611
  3. TRASTUZUMAB [Concomitant]
     Dates: start: 20071213, end: 20080611
  4. ONDANSETRON HYDROCHLORIDE [Concomitant]
     Dates: start: 20071213
  5. PANTOPRAZOLE SODIUM [Concomitant]
     Dates: start: 20071213

REACTIONS (3)
  - CARDIAC FAILURE [None]
  - DYSPNOEA [None]
  - PLEURAL EFFUSION [None]
